FAERS Safety Report 5742435-0 (Version None)
Quarter: 2008Q2

REPORT INFORMATION
  Report Type: 
  Country: None (occurrence: None)
  Receive Date: 20080519
  Receipt Date: 20080513
  Transmission Date: 20081010
  Serious: Yes (Other)
  Sender: FDA-Public Use
  Company Number: DK-TEVA-171490USA

PATIENT
  Age: 28 Year
  Sex: Female

DRUGS (2)
  1. PIMOZIDE TABLETS [Suspect]
     Indication: DRUG USE FOR UNKNOWN INDICATION
     Route: 048
     Dates: start: 19960101
  2. PIMOZIDE TABLETS [Suspect]

REACTIONS (2)
  - DIARRHOEA [None]
  - VISUAL DISTURBANCE [None]
